FAERS Safety Report 6891885-8 (Version None)
Quarter: 2010Q3

REPORT INFORMATION
  Report Type: 
  Country: None (occurrence: None)
  Receive Date: 20100731
  Receipt Date: 20071031
  Transmission Date: 20110219
  Serious: No
  Sender: FDA-Public Use
  Company Number: US-PFIZER INC-2007092233

PATIENT
  Sex: Male
  Weight: 81.65 kg

DRUGS (15)
  1. GABAPENTIN [Suspect]
     Indication: COMPLEX REGIONAL PAIN SYNDROME
     Dates: start: 20071001
  2. VYTORIN [Concomitant]
     Indication: BLOOD CHOLESTEROL INCREASED
  3. ALL OTHER THERAPEUTIC PRODUCTS [Concomitant]
     Indication: HYPERTENSION
  4. LISINOPRIL [Concomitant]
     Indication: HYPERTENSION
  5. NIFEDIPINE [Concomitant]
     Indication: HYPERTENSION
  6. ALPRAZOLAM [Concomitant]
  7. LORATADINE [Concomitant]
  8. ACETYLSALICYLIC ACID SRT [Concomitant]
  9. FOSAMAX [Concomitant]
  10. CALCIUM CITRATE [Concomitant]
  11. MAGNESIUM [Concomitant]
  12. FISH OIL [Concomitant]
  13. COMBINATIONS OF VITAMINS [Concomitant]
  14. PLAVIX [Concomitant]
  15. TRAMAZOLINE [Concomitant]
     Indication: GLAUCOMA

REACTIONS (2)
  - BURNING SENSATION [None]
  - SLEEP DISORDER [None]
